FAERS Safety Report 11858584 (Version 1)
Quarter: 2015Q4

REPORT INFORMATION
  Report Type: Spontaneous
  Country: US (occurrence: US)
  Receive Date: 20151222
  Receipt Date: 20151222
  Transmission Date: 20160305
  Serious: No
  Sender: FDA-Public Use
  Company Number: US-ASTRAZENECA-2015SF26564

PATIENT

DRUGS (1)
  1. NEXIUM [Suspect]
     Active Substance: ESOMEPRAZOLE MAGNESIUM
     Dosage: UNKNOWN
     Route: 048

REACTIONS (5)
  - Weight decreased [Unknown]
  - Gastric ulcer [Unknown]
  - Abdominal pain upper [Unknown]
  - Vomiting [Unknown]
  - Intentional product misuse [Unknown]
